FAERS Safety Report 9393366 (Version 1)
Quarter: 2013Q3

REPORT INFORMATION
  Report Type: Spontaneous
  Country: US (occurrence: None)
  Receive Date: 20130709
  Receipt Date: 20130709
  Transmission Date: 20140515
  Serious: Yes (Death)
  Sender: FDA-Public Use
  Company Number: None

PATIENT
  Age: 62 Year
  Sex: Female
  Weight: 113.3 kg

DRUGS (22)
  1. ABLAVAR [Suspect]
     Indication: NUCLEAR MAGNETIC RESONANCE IMAGING
     Route: 042
     Dates: start: 20130610, end: 20130610
  2. NYSTATIN [Concomitant]
  3. NICOTINE GUM [Concomitant]
  4. LANTUS [Concomitant]
  5. GLIPIZIDE [Concomitant]
  6. GABAPENTIN [Concomitant]
  7. FUROSEMIDE [Concomitant]
  8. FORMOTEROL [Concomitant]
  9. CLOBETASOL PROPIONATE [Concomitant]
  10. ARIPIPRAZOLE [Concomitant]
  11. ALBUTEROL [Concomitant]
  12. OXYGEN [Concomitant]
  13. PRAVASTATIN [Concomitant]
  14. CALCIUM CARBONATE/VIT. D3 [Concomitant]
  15. ACETAMINOPHEN [Concomitant]
  16. DOCUSATE [Concomitant]
  17. DILTIAZEM [Concomitant]
  18. SERTRALINE [Concomitant]
  19. OMEPRAZOLE [Concomitant]
  20. TRAMADOL [Concomitant]
  21. SPIRIVA [Concomitant]
  22. PREDNISONE [Concomitant]

REACTIONS (5)
  - Pallor [None]
  - Unresponsive to stimuli [None]
  - Pulseless electrical activity [None]
  - Cardio-respiratory arrest [None]
  - Contrast media reaction [None]
